FAERS Safety Report 10795219 (Version 1)
Quarter: 2015Q1

REPORT INFORMATION
  Report Type: Spontaneous
  Country: US (occurrence: US)
  Receive Date: 20150214
  Receipt Date: 20150214
  Transmission Date: 20150721
  Serious: No
  Sender: FDA-Public Use
  Company Number: US-GLAXOSMITHKLINE-A1078069A

PATIENT

DRUGS (4)
  1. IMITREX [Suspect]
     Active Substance: SUMATRIPTAN\SUMATRIPTAN SUCCINATE
     Indication: HEADACHE
     Route: 042
  2. AMERGE [Suspect]
     Active Substance: NARATRIPTAN HYDROCHLORIDE
     Indication: HEADACHE
     Route: 048
  3. CELEXA [Suspect]
     Active Substance: CITALOPRAM HYDROBROMIDE
     Indication: HEADACHE
     Route: 048
  4. DETROL LA [Concomitant]
     Active Substance: TOLTERODINE TARTRATE

REACTIONS (6)
  - Headache [Unknown]
  - Emotional disorder [Unknown]
  - Drug ineffective [Unknown]
  - Personality change [Unknown]
  - Nonspecific reaction [Unknown]
  - Feeling abnormal [Unknown]
